FAERS Safety Report 19899201 (Version 1)
Quarter: 2021Q3

REPORT INFORMATION
  Report Type: Spontaneous
  Country: TH (occurrence: TH)
  Receive Date: 20210930
  Receipt Date: 20210930
  Transmission Date: 20211014
  Serious: Yes (Other)
  Sender: FDA-Public Use
  Company Number: TH-ROCHE-2919749

PATIENT
  Age: 18 Year
  Sex: Male
  Weight: 72 kg

DRUGS (1)
  1. EMICIZUMAB. [Suspect]
     Active Substance: EMICIZUMAB
     Indication: PRODUCT USED FOR UNKNOWN INDICATION
     Dosage: 4?WEEK MAINTENANCE OF EMICIZUMAB 6 MG/KG
     Route: 065

REACTIONS (1)
  - Lower gastrointestinal haemorrhage [Unknown]
